FAERS Safety Report 12966665 (Version 1)
Quarter: 2016Q4

REPORT INFORMATION
  Report Type: Spontaneous
  Country: US (occurrence: US)
  Receive Date: 20161122
  Receipt Date: 20161122
  Transmission Date: 20170207
  Serious: Yes (Other)
  Sender: FDA-Public Use
  Company Number: US-SHIRE-US201617115

PATIENT
  Sex: Female

DRUGS (1)
  1. XIIDRA [Suspect]
     Active Substance: LIFITEGRAST
     Indication: DRY EYE
     Dosage: 2 GTT (1 GTT EACH EYE), 2X/DAY:BID
     Route: 047
     Dates: start: 201611, end: 20161110

REACTIONS (2)
  - Cardiac flutter [Unknown]
  - Palpitations [Unknown]

NARRATIVE: CASE EVENT DATE: 201611
